FAERS Safety Report 5247143-0 (Version None)
Quarter: 2007Q1

REPORT INFORMATION
  Report Type: 
  Country: None (occurrence: None)
  Receive Date: 20070221
  Receipt Date: 20070208
  Transmission Date: 20070707
  Serious: Yes (Death)
  Sender: FDA-Public Use
  Company Number: 200702IM000075

PATIENT
  Age: 90 Year
  Sex: Male

DRUGS (2)
  1. ACTIMMUNE [Suspect]
     Indication: INFLAMMATION
     Dosage: 200 UG, TIW, SUBCUTANEOUS
     Route: 058
     Dates: start: 20060622
  2. ACTIMMUNE [Suspect]
     Indication: PULMONARY FIBROSIS
     Dosage: 200 UG, TIW, SUBCUTANEOUS
     Route: 058
     Dates: start: 20060622

REACTIONS (1)
  - DEATH [None]
